FAERS Safety Report 8211616-9 (Version None)
Quarter: 2012Q1

REPORT INFORMATION
  Report Type: 
  Country: None (occurrence: None)
  Receive Date: 20120315
  Receipt Date: 20120306
  Transmission Date: 20120608
  Serious: Yes (Death, Other)
  Sender: FDA-Public Use
  Company Number: GB-MILLENNIUM PHARMACEUTICALS, INC.-2012-00802

PATIENT

DRUGS (6)
  1. FORTISIP [Concomitant]
  2. METOCLOPRAMIDE [Concomitant]
     Indication: PROPHYLAXIS
     Dosage: 10 MG, UNK
     Route: 048
  3. VELCADE [Suspect]
     Indication: MULTIPLE MYELOMA
     Dosage: 1.8 MG, UNK
     Route: 042
     Dates: start: 20111229, end: 20120126
  4. MORPHINE SULPHATE BP [Concomitant]
     Indication: PAIN
     Dosage: 10 MG, UNK
     Route: 048
  5. CITALOPRAM HYDROBROMIDE [Concomitant]
     Indication: DEPRESSED MOOD
     Dosage: 10 MG, UNK
     Route: 048
  6. ACETAMINOPHEN [Concomitant]
     Indication: PAIN
     Dosage: 1 G, UNK
     Route: 048

REACTIONS (6)
  - CRYOGLOBULINS [None]
  - HAEMOGLOBIN DECREASED [None]
  - LIVER FUNCTION TEST ABNORMAL [None]
  - HAEMORRHAGE [None]
  - VOMITING [None]
  - SEPSIS [None]
